FAERS Safety Report 15645948 (Version 3)
Quarter: 2025Q1

REPORT INFORMATION
  Report Type: Report from Study
  Country: US (occurrence: US)
  Receive Date: 20181121
  Receipt Date: 20250131
  Transmission Date: 20250409
  Serious: Yes (Other)
  Sender: TAKEDA
  Company Number: US-TAKEDA-2018TUS033093

PATIENT
  Sex: Male
  Weight: 74.83 kg

DRUGS (2)
  1. VEDOLIZUMAB [Suspect]
     Active Substance: VEDOLIZUMAB
     Indication: Colitis ulcerative
  2. DELZICOL [Concomitant]
     Active Substance: MESALAMINE
     Indication: Colitis ulcerative
     Dosage: UNK UNK, BID

REACTIONS (5)
  - Depression [Not Recovered/Not Resolved]
  - Insomnia [Unknown]
  - Cognitive disorder [Unknown]
  - Confusional state [Unknown]
  - Product dose omission issue [Unknown]
